FAERS Safety Report 5338270-8 (Version None)
Quarter: 2007Q2

REPORT INFORMATION
  Report Type: 
  Country: None (occurrence: None)
  Receive Date: 20070327
  Receipt Date: 20070206
  Transmission Date: 20071010
  Serious: No
  Sender: FDA-Public Use
  Company Number: 236353

PATIENT

DRUGS (2)
  1. AVASTIN [Suspect]
     Indication: BREAST CANCER METASTATIC
  2. TAXOL [Suspect]
     Indication: BREAST CANCER METASTATIC

REACTIONS (1)
  - HYPERTRIGLYCERIDAEMIA [None]
